FAERS Safety Report 9377639 (Version 1)
Quarter: 2013Q2

REPORT INFORMATION
  Report Type: Spontaneous
  Country: CN (occurrence: None)
  Receive Date: 20130625
  Receipt Date: 20130625
  Transmission Date: 20140414
  Serious: Yes (Other)
  Sender: FDA-Public Use
  Company Number: VAL_02583_2013

PATIENT
  Age: 75 Year
  Sex: Male

DRUGS (1)
  1. ROCALTROL [Suspect]
     Indication: OSTEOPOROSIS
     Route: 048
     Dates: start: 20130515, end: 201306

REACTIONS (1)
  - Urinary tract infection [None]
